FAERS Safety Report 6589458-X (Version None)
Quarter: 2010Q1

REPORT INFORMATION
  Report Type: 
  Country: None (occurrence: None)
  Receive Date: 20100218
  Receipt Date: 20100211
  Transmission Date: 20100710
  Serious: Yes (Hospitalization, Other)
  Sender: FDA-Public Use
  Company Number: US-MERCK-0803USA04516

PATIENT
  Age: 74 Year
  Sex: Female

DRUGS (6)
  1. FOSAMAX [Suspect]
     Indication: OSTEOPENIA
     Route: 048
     Dates: start: 20031103, end: 20060101
  2. FOSAMAX PLUS D [Suspect]
     Route: 048
     Dates: start: 20050801
  3. VALIUM [Concomitant]
     Indication: ANXIETY
     Route: 065
     Dates: start: 19930101
  4. [THERAPY UNSPECIFIED] [Concomitant]
     Indication: HYPERTENSION
     Route: 065
     Dates: start: 19980101
  5. [THERAPY UNSPECIFIED] [Concomitant]
     Indication: BLOOD CHOLESTEROL INCREASED
     Route: 065
     Dates: start: 19980101
  6. ACTONEL [Concomitant]
     Indication: OSTEOPENIA
     Route: 048
     Dates: start: 20021209, end: 20031101

REACTIONS (13)
  - ANXIETY [None]
  - CHEST PAIN [None]
  - DRUG HYPERSENSITIVITY [None]
  - FISTULA [None]
  - JAW DISORDER [None]
  - JOINT HYPEREXTENSION [None]
  - OSTEOARTHRITIS [None]
  - OSTEONECROSIS [None]
  - PAIN [None]
  - SINUS DISORDER [None]
  - URETHRAL CARUNCLE [None]
  - URINARY TRACT DISORDER [None]
  - VAGINAL POLYP [None]
